FAERS Safety Report 19240792 (Version 2)
Quarter: 2021Q2

REPORT INFORMATION
  Report Type: Spontaneous
  Country: BE (occurrence: BE)
  Receive Date: 20210510
  Receipt Date: 20210519
  Transmission Date: 20210717
  Serious: Yes (Other)
  Sender: FDA-Public Use
  Company Number: BE-ROCHE-2826572

PATIENT
  Age: 60 Year
  Sex: Male

DRUGS (5)
  1. LEDERTREXATE [Concomitant]
     Active Substance: METHOTREXATE
  2. CELLCEPT [Suspect]
     Active Substance: MYCOPHENOLATE MOFETIL\MYCOPHENOLATE MOFETIL HYDROCHLORIDE
     Indication: PRODUCT USED FOR UNKNOWN INDICATION
     Route: 065
  3. DAPSONE. [Concomitant]
     Active Substance: DAPSONE
     Dates: start: 202012
  4. MEDROL [Concomitant]
     Active Substance: METHYLPREDNISOLONE
     Dates: start: 20201113
  5. MEDROL [Concomitant]
     Active Substance: METHYLPREDNISOLONE
     Dates: start: 202012

REACTIONS (2)
  - Polychondritis [Unknown]
  - Drug ineffective [Unknown]
